APPROVED DRUG PRODUCT: ESOMEPRAZOLE STRONTIUM
Active Ingredient: ESOMEPRAZOLE STRONTIUM
Strength: 24.65MG
Dosage Form/Route: CAPSULE, DELAYED RELEASE;ORAL
Application: N202342 | Product #001
Applicant: BELCHER PHARMATECH LLC
Approved: Aug 6, 2013 | RLD: Yes | RS: No | Type: DISCN